FAERS Safety Report 9055041 (Version 1)
Quarter: 2013Q1

REPORT INFORMATION
  Report Type: Spontaneous
  Country: FR (occurrence: FR)
  Receive Date: 20130206
  Receipt Date: 20130206
  Transmission Date: 20140127
  Serious: Yes (Congenital Anomaly)
  Sender: FDA-Public Use
  Company Number: FR-SANOFI-AVENTIS-2012SA065037

PATIENT
  Sex: 0

DRUGS (1)
  1. AMAREL [Suspect]
     Indication: FOETAL EXPOSURE DURING PREGNANCY
     Route: 064
     Dates: start: 20120711, end: 20120907

REACTIONS (1)
  - Foetal malformation [Recovered/Resolved with Sequelae]
